FAERS Safety Report 4784353-0 (Version None)
Quarter: 2005Q3

REPORT INFORMATION
  Report Type: 
  Country: None (occurrence: None)
  Receive Date: 20050930
  Receipt Date: 20050920
  Transmission Date: 20060218
  Serious: Yes (Hospitalization)
  Sender: FDA-Public Use
  Company Number: 200513111FR

PATIENT
  Age: 66 Year
  Sex: Female
  Weight: 61 kg

DRUGS (10)
  1. TRIATEC [Suspect]
     Dosage: DOSE UNIT: UNITS
     Route: 048
     Dates: end: 20050123
  2. LASILIX [Suspect]
     Route: 048
     Dates: end: 20050123
  3. ALDACTONE [Suspect]
     Route: 048
     Dates: end: 20050123
  4. MORPHINE [Concomitant]
     Route: 042
     Dates: start: 20050117
  5. NITROGLYCERIN [Concomitant]
     Dosage: DOSE UNIT: UNITS
     Route: 003
  6. KARDEGIC [Concomitant]
     Dosage: DOSE UNIT: UNITS
     Route: 048
  7. TRAMADOL HCL [Concomitant]
     Route: 048
  8. INSULATARD NPH HUMAN [Concomitant]
     Route: 058
  9. DOLIPRANE [Concomitant]
     Route: 048
  10. ATARAX [Concomitant]
     Route: 048

REACTIONS (6)
  - BRADYPNOEA [None]
  - DEHYDRATION [None]
  - OVERDOSE [None]
  - PULMONARY CONGESTION [None]
  - RENAL FAILURE ACUTE [None]
  - SOMNOLENCE [None]
